FAERS Safety Report 8203684-5 (Version None)
Quarter: 2012Q1

REPORT INFORMATION
  Report Type: 
  Country: None (occurrence: None)
  Receive Date: 20120308
  Receipt Date: 20120228
  Transmission Date: 20120608
  Serious: Yes (Other)
  Sender: FDA-Public Use
  Company Number: FK201200594

PATIENT
  Sex: Male

DRUGS (4)
  1. CLONIDINE [Concomitant]
  2. FENTANYL [Concomitant]
  3. ASTRAMORPH PF [Suspect]
     Indication: ANALGESIC THERAPY
     Dosage: SEE IMAGE:  INTRAVENOUS (NOT OTHERWISE SPECIFIED)
     Route: 042
  4. MIDAZOLAM (MIDAZOLAM HYDROCHLORID) [Concomitant]

REACTIONS (8)
  - AGITATION NEONATAL [None]
  - SEPSIS NEONATAL [None]
  - HYPERAESTHESIA [None]
  - INTESTINAL ISCHAEMIA [None]
  - COAGULOPATHY [None]
  - PHOTOPHOBIA [None]
  - ALLODYNIA [None]
  - DRUG EFFECT DECREASED [None]
